FAERS Safety Report 18355882 (Version 1)
Quarter: 2020Q4

REPORT INFORMATION
  Report Type: Other
  Country: PT (occurrence: PT)
  Receive Date: 20201007
  Receipt Date: 20201007
  Transmission Date: 20210114
  Serious: Yes (Hospitalization)
  Sender: FDA-Public Use
  Company Number: PT-EMD SERONO-9189759

PATIENT
  Age: 62 Year
  Sex: Female

DRUGS (1)
  1. INTERFERON BETA NOS [Suspect]
     Active Substance: INTERFERON BETA
     Indication: MULTIPLE SCLEROSIS

REACTIONS (1)
  - Hyponatraemia [Recovered/Resolved]
